FAERS Safety Report 15994945 (Version 1)
Quarter: 2019Q1

REPORT INFORMATION
  Report Type: Spontaneous
  Country: GB (occurrence: GB)
  Receive Date: 20190222
  Receipt Date: 20190222
  Transmission Date: 20190418
  Serious: Yes (Hospitalization)
  Sender: FDA-Public Use
  Company Number: GB-TORRENT-00020390

PATIENT
  Age: 33 Year
  Sex: Male
  Weight: 82 kg

DRUGS (2)
  1. TORRENT PHARMA UK LEVETIRACETAM [Suspect]
     Active Substance: LEVETIRACETAM
     Indication: EPILEPSY
     Route: 048
     Dates: start: 20181026, end: 20181029
  2. KEPPRA [Concomitant]
     Active Substance: LEVETIRACETAM
     Indication: PRODUCT USED FOR UNKNOWN INDICATION

REACTIONS (6)
  - Headache [Unknown]
  - Product substitution issue [Unknown]
  - Product dispensing error [Unknown]
  - Depression [Not Recovered/Not Resolved]
  - Epilepsy [Recovered/Resolved with Sequelae]
  - Pericarditis [Recovered/Resolved]

NARRATIVE: CASE EVENT DATE: 20181029
